FAERS Safety Report 19018039 (Version 2)
Quarter: 2021Q2

REPORT INFORMATION
  Report Type: Spontaneous
  Country: GB (occurrence: GB)
  Receive Date: 20210317
  Receipt Date: 20210416
  Transmission Date: 20210717
  Serious: Yes (Other)
  Sender: FDA-Public Use
  Company Number: GB-AUROBINDO-AUR-APL-2021-010636

PATIENT
  Age: 77 Year
  Sex: Female

DRUGS (5)
  1. IMATINIB. [Suspect]
     Active Substance: IMATINIB MESYLATE
     Indication: CHRONIC MYELOID LEUKAEMIA
     Dosage: UNK
     Route: 065
     Dates: start: 20180227, end: 20180911
  2. BOSUTINIB [Suspect]
     Active Substance: BOSUTINIB
     Dosage: UNK
     Route: 065
  3. BOSUTINIB [Suspect]
     Active Substance: BOSUTINIB
     Indication: CHRONIC MYELOID LEUKAEMIA
     Dosage: UNK
     Route: 065
     Dates: start: 20200709, end: 20200925
  4. DASATINIB. [Suspect]
     Active Substance: DASATINIB
     Indication: CHRONIC MYELOID LEUKAEMIA
     Dosage: UNK
     Route: 065
     Dates: start: 20201001, end: 20201130
  5. NILOTINIB [Suspect]
     Active Substance: NILOTINIB
     Indication: CHRONIC MYELOID LEUKAEMIA
     Dosage: UNK
     Route: 065
     Dates: start: 20180928, end: 20190417

REACTIONS (8)
  - Drug intolerance [Unknown]
  - Raynaud^s phenomenon [Unknown]
  - Migraine [Unknown]
  - Rash [Unknown]
  - Diarrhoea [Unknown]
  - Myalgia [Unknown]
  - Nausea [Unknown]
  - Pancytopenia [Unknown]
